FAERS Safety Report 9997810 (Version 1)
Quarter: 2014Q1

REPORT INFORMATION
  Report Type: Spontaneous
  Country: US (occurrence: None)
  Receive Date: 20140304
  Receipt Date: 20140304
  Transmission Date: 20141002
  Serious: Yes (Other)
  Sender: FDA-Public Use
  Company Number: RB-50749-2013

PATIENT
  Sex: Female

DRUGS (4)
  1. SUBUTEX [Suspect]
     Indication: DRUG DEPENDENCE
     Dates: start: 201305
  2. SUBOXONE [Suspect]
     Indication: DRUG DEPENDENCE
     Route: 060
     Dates: start: 201211, end: 2013
  3. CONTRACEPTIVES [Concomitant]
  4. ANALGESICS [Concomitant]

REACTIONS (4)
  - Burning sensation [None]
  - Therapeutic response decreased [None]
  - Drug abuse [None]
  - Aphthous stomatitis [None]
